FAERS Safety Report 15412491 (Version 1)
Quarter: 2018Q3

REPORT INFORMATION
  Report Type: Spontaneous
  Country: US (occurrence: US)
  Receive Date: 20180921
  Receipt Date: 20180921
  Transmission Date: 20181010
  Serious: Yes (Hospitalization)
  Sender: FDA-Public Use
  Company Number: US-SAKK-2018SA261948AA

PATIENT
  Age: 66 Year
  Sex: Female

DRUGS (2)
  1. ALIROCUMAB PREFILLED PEN [Suspect]
     Active Substance: ALIROCUMAB
     Indication: LIPID METABOLISM DISORDER
     Dosage: 75 MG/ML, QOW
     Route: 058
     Dates: start: 20180508
  2. PRALUENT [Suspect]
     Active Substance: ALIROCUMAB
     Indication: LIPID METABOLISM DISORDER
     Dosage: 75 MG/ML, QOW
     Route: 058
     Dates: start: 20180528

REACTIONS (1)
  - Neck surgery [Unknown]
